FAERS Safety Report 16594558 (Version 1)
Quarter: 2019Q3

REPORT INFORMATION
  Report Type: Other
  Country: US (occurrence: US)
  Receive Date: 20190718
  Receipt Date: 20190718
  Transmission Date: 20191004
  Serious: No
  Sender: FDA-Public Use
  Company Number: US-SWEDISH ORPHAN BIOVITRUM-2019US0410

PATIENT
  Sex: Female

DRUGS (6)
  1. KINERET [Suspect]
     Active Substance: ANAKINRA
     Route: 058
     Dates: start: 20190126
  2. CALCIUM [Concomitant]
     Active Substance: CALCIUM
  3. FOLIC ACID. [Concomitant]
     Active Substance: FOLIC ACID
  4. METHOTREXATE. [Concomitant]
     Active Substance: METHOTREXATE
  5. PLAQUENIL [Concomitant]
     Active Substance: HYDROXYCHLOROQUINE SULFATE
  6. PREDNISONE. [Concomitant]
     Active Substance: PREDNISONE

REACTIONS (5)
  - Injection site swelling [Recovered/Resolved]
  - Injection site erythema [Recovered/Resolved]
  - Rash morbilliform [Recovered/Resolved]
  - Injection site pain [Recovered/Resolved]
  - Injection site rash [Recovered/Resolved]
